FAERS Safety Report 12289612 (Version 1)
Quarter: 2016Q2

REPORT INFORMATION
  Report Type: Spontaneous
  Country: US (occurrence: None)
  Receive Date: 20160420
  Receipt Date: 20160420
  Transmission Date: 20160815
  Serious: Yes (Life-Threatening, Hospitalization, Other)
  Sender: FDA-Public Use
  Company Number: None

PATIENT
  Age: 59 Year
  Sex: Male

DRUGS (1)
  1. LORAZEPAM UNKNOWN [Suspect]
     Active Substance: LORAZEPAM
     Indication: AGITATION
     Dosage: SINGLE DOSE
     Route: 042
     Dates: start: 20090221, end: 20090221

REACTIONS (5)
  - Tachycardia [None]
  - Hypotension [None]
  - Acute respiratory failure [None]
  - Tachypnoea [None]
  - Oxygen saturation decreased [None]

NARRATIVE: CASE EVENT DATE: 20090221
